FAERS Safety Report 21020896 (Version 1)
Quarter: 2022Q2

REPORT INFORMATION
  Report Type: Spontaneous
  Country: CN (occurrence: CN)
  Receive Date: 20220629
  Receipt Date: 20220629
  Transmission Date: 20220721
  Serious: Yes (Other)
  Sender: FDA-Public Use
  Company Number: CN-SUN PHARMACEUTICAL INDUSTRIES LTD-2022R1-342195

PATIENT
  Age: 21 Year
  Sex: Female

DRUGS (3)
  1. DEXAMETHASONE [Suspect]
     Active Substance: DEXAMETHASONE
     Indication: Central nervous system leukaemia
     Dosage: 5 MILLIGRAM, EVERY 2 MONTHS (5 CYCLES)
     Route: 065
  2. BEVACIZUMAB [Suspect]
     Active Substance: BEVACIZUMAB
     Indication: Central nervous system leukaemia
     Dosage: 300 MILLIGRAM (7.5 MG/KG) EVERY 3 WEEKS (5 CYCLES)
     Route: 065
  3. CYTARABINE [Suspect]
     Active Substance: CYTARABINE
     Indication: Central nervous system leukaemia
     Dosage: 40 MILLIGRAM EVERY 2 MONTHS (5 CYCLES)
     Route: 065

REACTIONS (1)
  - Therapy partial responder [Unknown]
